FAERS Safety Report 24739181 (Version 1)
Quarter: 2024Q4

REPORT INFORMATION
  Report Type: Spontaneous
  Country: US (occurrence: US)
  Receive Date: 20241216
  Receipt Date: 20241216
  Transmission Date: 20250115
  Serious: No
  Sender: JOHNSON AND JOHNSON
  Company Number: US-JNJFOC-20241140905

PATIENT

DRUGS (1)
  1. TREMFYA [Suspect]
     Active Substance: GUSELKUMAB
     Indication: Product used for unknown indication

REACTIONS (5)
  - Accidental exposure to product [Unknown]
  - Device malfunction [Unknown]
  - Device leakage [Unknown]
  - Drug dose omission by device [Unknown]
  - Exposure via skin contact [Unknown]
